FAERS Safety Report 9394645 (Version 1)
Quarter: 2013Q3

REPORT INFORMATION
  Report Type: Spontaneous
  Country: US (occurrence: None)
  Receive Date: 20130709
  Receipt Date: 20130709
  Transmission Date: 20140515
  Serious: No
  Sender: FDA-Public Use
  Company Number: None

PATIENT
  Age: 32 Year
  Sex: Female

DRUGS (1)
  1. MIRENA [Suspect]

REACTIONS (7)
  - Vaginal discharge [None]
  - Menstrual disorder [None]
  - Abdominal pain [None]
  - Embedded device [None]
  - Vaginal haemorrhage [None]
  - Uterine cyst [None]
  - Uterine prolapse [None]
